FAERS Safety Report 5921455-7 (Version None)
Quarter: 2008Q4

REPORT INFORMATION
  Report Type: 
  Country: None (occurrence: None)
  Receive Date: 20081014
  Receipt Date: 20081003
  Transmission Date: 20090506
  Serious: Yes (Hospitalization)
  Sender: FDA-Public Use
  Company Number: 2008BI016647

PATIENT
  Age: 43 Year
  Sex: Male

DRUGS (13)
  1. TYSABRI [Suspect]
     Indication: MULTIPLE SCLEROSIS
     Dosage: 300 MG; QM; IV
     Route: 042
     Dates: start: 20080214
  2. DIAZEPAM [Concomitant]
  3. TRAMADOL HCL [Concomitant]
  4. ACETAMINOPHEN [Concomitant]
  5. SKELAXIN [Concomitant]
  6. SENNA-S [Concomitant]
  7. ENDOCET [Concomitant]
  8. FEXOFENADINE [Concomitant]
  9. PERCOCET [Concomitant]
  10. CRANTEX [Concomitant]
  11. CRESTOR [Concomitant]
  12. CITALOPRAM HYDROBROMIDE [Concomitant]
  13. PRILOSEC [Concomitant]

REACTIONS (2)
  - HIP ARTHROPLASTY [None]
  - PNEUMONIA [None]
